FAERS Safety Report 14167772 (Version 3)
Quarter: 2018Q4

REPORT INFORMATION
  Report Type: Report from Study
  Country: JP (occurrence: JP)
  Receive Date: 20171108
  Receipt Date: 20181122
  Transmission Date: 20190204
  Serious: Yes (Hospitalization, Other)
  Sender: FDA-Public Use
  Company Number: JP-AMGEN-JPNNI2017168141

PATIENT
  Age: 61 Year
  Sex: Male

DRUGS (7)
  1. DARBEPOETIN ALFA [Suspect]
     Active Substance: DARBEPOETIN ALFA
     Dosage: UNK
     Route: 042
     Dates: start: 20170209, end: 20170413
  2. DARBEPOETIN ALFA [Suspect]
     Active Substance: DARBEPOETIN ALFA
     Indication: PRODUCT USED FOR UNKNOWN INDICATION
     Dosage: UNK
     Route: 042
     Dates: start: 20161014, end: 20170209
  3. DARBEPOETIN ALFA [Suspect]
     Active Substance: DARBEPOETIN ALFA
     Dosage: UNK
     Route: 042
     Dates: start: 20170414, end: 20180222
  4. DARBEPOETIN ALFA [Suspect]
     Active Substance: DARBEPOETIN ALFA
     Dosage: UNK
     Route: 042
     Dates: start: 20180223
  5. ROCALTROL [Suspect]
     Active Substance: CALCITRIOL
     Dosage: UNK
     Route: 042
     Dates: start: 20170515
  6. ROCALTROL [Suspect]
     Active Substance: CALCITRIOL
     Indication: PRODUCT USED FOR UNKNOWN INDICATION
     Dosage: UNK
     Route: 042
     Dates: start: 20170310, end: 20170411
  7. ROCALTROL [Suspect]
     Active Substance: CALCITRIOL
     Dosage: UNK
     Route: 042
     Dates: start: 20170412, end: 20170515

REACTIONS (17)
  - Neoplasm malignant [Recovering/Resolving]
  - Neoplasm malignant [Recovering/Resolving]
  - Neoplasm malignant [Recovering/Resolving]
  - Neoplasm malignant [Recovering/Resolving]
  - Azotaemia [Recovering/Resolving]
  - Neoplasm malignant [Recovering/Resolving]
  - Pancreatitis [Recovering/Resolving]
  - Hospitalisation [Recovering/Resolving]
  - Hospitalisation [Recovering/Resolving]
  - Neoplasm malignant [Recovering/Resolving]
  - End stage renal disease [Recovering/Resolving]
  - Neoplasm malignant [Recovering/Resolving]
  - Neoplasm malignant [Recovering/Resolving]
  - Neoplasm malignant [Recovering/Resolving]
  - Neoplasm malignant [Recovering/Resolving]
  - Neoplasm malignant [Recovering/Resolving]
  - Neoplasm malignant [Recovering/Resolving]

NARRATIVE: CASE EVENT DATE: 20170131
